FAERS Safety Report 26122395 (Version 1)
Quarter: 2025Q4

REPORT INFORMATION
  Report Type: Spontaneous
  Country: EU (occurrence: EU)
  Receive Date: 20251204
  Receipt Date: 20251204
  Transmission Date: 20260118
  Serious: Yes (Other)
  Sender: SANDOZ
  Company Number: None

PATIENT
  Age: 60 Year
  Sex: Male

DRUGS (3)
  1. ADALIMUMAB [Suspect]
     Active Substance: ADALIMUMAB
     Indication: Arthritis
     Dosage: 40 MG, Q2W,  SOLUTION FOR INJECTION IN PRE FILLED PEN
     Route: 058
     Dates: start: 20231107, end: 202407
  2. METHOTREXATE SODIUM [Suspect]
     Active Substance: METHOTREXATE SODIUM
     Indication: Arthritis
     Dosage: 15 MG, QW
     Route: 048
     Dates: start: 20240225, end: 202507
  3. SIMPONI [Suspect]
     Active Substance: GOLIMUMAB
     Indication: Arthritis
     Dosage: 51 MG, Q3W,  SOLUTION FOR INJECTION IN PRE FILLED PEN
     Route: 058
     Dates: start: 201306, end: 202507

REACTIONS (1)
  - Osteonecrosis of jaw [Not Recovered/Not Resolved]

NARRATIVE: CASE EVENT DATE: 20250101
